FAERS Safety Report 6931129-1 (Version None)
Quarter: 2010Q3

REPORT INFORMATION
  Report Type: 
  Country: None (occurrence: None)
  Receive Date: 20100817
  Receipt Date: 20100817
  Transmission Date: 20110219
  Serious: Yes (Other)
  Sender: FDA-Public Use
  Company Number: None

PATIENT
  Age: 78 Year
  Sex: Male
  Weight: 77.1115 kg

DRUGS (2)
  1. NEVANAC [Suspect]
     Indication: CATARACT OPERATION
     Dates: start: 20100608, end: 20100613
  2. NEVANAC [Suspect]
     Indication: EYE LASER SURGERY
     Dates: start: 20100608, end: 20100613

REACTIONS (5)
  - CONVULSION [None]
  - COUGH [None]
  - MUSCLE SPASMS [None]
  - PRURITUS [None]
  - THROAT IRRITATION [None]
